FAERS Safety Report 8504345-5 (Version None)
Quarter: 2012Q3

REPORT INFORMATION
  Report Type: 
  Country: None (occurrence: None)
  Receive Date: 20120711
  Receipt Date: 20120704
  Transmission Date: 20120928
  Serious: Yes (Death, Life-Threatening, Hospitalization, Other)
  Sender: FDA-Public Use
  Company Number: JP-CELGENEUS-087-50794-11101813

PATIENT
  Sex: Male
  Weight: 55 kg

DRUGS (61)
  1. ADALAT CC [Concomitant]
     Route: 065
     Dates: end: 20111005
  2. ACETAMINOPHEN [Concomitant]
     Route: 065
     Dates: start: 20110824, end: 20110916
  3. TEICOPLANIN [Concomitant]
     Route: 065
     Dates: start: 20111003, end: 20111011
  4. ADONA [Concomitant]
     Route: 065
     Dates: end: 20110920
  5. SPIRIVA [Concomitant]
     Route: 065
     Dates: end: 20111005
  6. HUSCODE [Concomitant]
     Route: 065
     Dates: start: 20110918, end: 20111005
  7. AZASETRON HYDROCHLORIDE [Concomitant]
     Route: 065
     Dates: start: 20110808, end: 20110812
  8. CEFTAZIDIME [Concomitant]
     Route: 065
     Dates: start: 20110907, end: 20110909
  9. HYDROCORTISONE SODIUM SUCCINATE [Concomitant]
     Route: 065
     Dates: start: 20110910, end: 20110910
  10. CHLOR-TRIMETON [Concomitant]
     Route: 065
     Dates: start: 20111002, end: 20111002
  11. TRANSAMINE CAP [Concomitant]
     Route: 065
     Dates: end: 20110920
  12. PURSENNID [Concomitant]
     Route: 065
     Dates: start: 20110815, end: 20111008
  13. ONON [Concomitant]
     Route: 065
     Dates: end: 20110920
  14. SULFAMETHOXAZOLE AND TRIMETHOPRIM [Concomitant]
     Route: 065
     Dates: start: 20110928, end: 20111005
  15. AZASETRON HYDROCHLORIDE [Concomitant]
     Route: 065
     Dates: start: 20110815, end: 20110816
  16. HYDROCORTISONE SODIUM SUCCINATE [Concomitant]
     Route: 065
     Dates: start: 20110920, end: 20110921
  17. HYDROCORTISONE SODIUM SUCCINATE [Concomitant]
     Route: 065
     Dates: start: 20111002, end: 20111002
  18. HYDROCORTISONE SODIUM SUCCINATE [Concomitant]
     Route: 065
     Dates: start: 20111010, end: 20111011
  19. CHLOR-TRIMETON [Concomitant]
     Route: 065
     Dates: start: 20110924, end: 20110924
  20. CHLOR-TRIMETON [Concomitant]
     Route: 065
     Dates: start: 20110930, end: 20110930
  21. CHLOR-TRIMETON [Concomitant]
     Route: 065
     Dates: start: 20111010, end: 20111011
  22. LAXOBERON [Concomitant]
     Route: 065
     Dates: start: 20110815, end: 20110815
  23. OLMESARTAN MEDOXOMIL [Concomitant]
     Route: 065
     Dates: end: 20110920
  24. MUCOSOLVAN [Concomitant]
     Route: 065
     Dates: end: 20110920
  25. ITRACONAZOLE [Concomitant]
     Route: 065
     Dates: start: 20110825, end: 20110826
  26. VFEND [Concomitant]
     Route: 065
     Dates: start: 20110917, end: 20111011
  27. HYDROCORTISONE SODIUM SUCCINATE [Concomitant]
     Route: 065
     Dates: start: 20110825, end: 20110825
  28. CHLOR-TRIMETON [Concomitant]
     Route: 065
     Dates: start: 20110825, end: 20110825
  29. CHLOR-TRIMETON [Concomitant]
     Route: 065
     Dates: start: 20110910, end: 20110910
  30. METHYLPREDNISOLONE SODIUM SUCCINATE [Concomitant]
     Route: 065
     Dates: start: 20110919, end: 20110919
  31. JANUVIA [Concomitant]
     Route: 065
     Dates: start: 20110812, end: 20110930
  32. DEXALTIN [Concomitant]
     Route: 065
     Dates: start: 20110901, end: 20110907
  33. HYDROCORTISONE SODIUM SUCCINATE [Concomitant]
     Route: 065
     Dates: start: 20110930, end: 20110930
  34. HYDROCORTISONE SODIUM SUCCINATE [Concomitant]
     Route: 065
     Dates: start: 20111004, end: 20111006
  35. HYDROCORTISONE SODIUM SUCCINATE [Concomitant]
     Route: 065
     Dates: start: 20111008, end: 20111008
  36. CHLOR-TRIMETON [Concomitant]
     Route: 065
     Dates: start: 20110920, end: 20110921
  37. CHLOR-TRIMETON [Concomitant]
     Route: 065
     Dates: start: 20111006, end: 20111006
  38. FAMOTIDINE [Concomitant]
     Route: 065
     Dates: start: 20110930, end: 20111003
  39. VIDAZA [Suspect]
     Dosage: 75 MILLIGRAM/SQ. METER
     Route: 041
     Dates: start: 20110808, end: 20110816
  40. MAGNESIUM OXIDE [Concomitant]
     Route: 065
     Dates: start: 20110815, end: 20111009
  41. METFORMIN HCL [Concomitant]
     Route: 065
     Dates: start: 20110819, end: 20110930
  42. ADSORBIN [Concomitant]
     Route: 065
     Dates: start: 20110811, end: 20110814
  43. FAMOTIDINE [Concomitant]
     Dates: start: 20111007, end: 20111011
  44. PANTOSIN [Concomitant]
     Route: 065
     Dates: start: 20110815, end: 20111009
  45. MUCODYNE [Concomitant]
     Route: 065
     Dates: end: 20110920
  46. CEFEPIME DIHYDROCHLORIDE HYDRATE [Concomitant]
     Route: 065
     Dates: start: 20110824, end: 20110906
  47. MEROPENEM [Concomitant]
     Route: 065
     Dates: start: 20110910, end: 20110922
  48. HYDROCORTISONE SODIUM SUCCINATE [Concomitant]
     Route: 065
     Dates: start: 20110924, end: 20110924
  49. CHLOR-TRIMETON [Concomitant]
     Route: 065
     Dates: start: 20110927, end: 20110927
  50. HALOPERIDOL [Concomitant]
     Route: 065
     Dates: start: 20110920, end: 20111010
  51. CATABON [Concomitant]
     Route: 065
     Dates: start: 20111011, end: 20111011
  52. VANCOMYCIN HYDROCHLORIDE [Concomitant]
     Route: 065
     Dates: start: 20110919, end: 20111002
  53. ZOSYN [Concomitant]
     Route: 065
     Dates: start: 20110923, end: 20111006
  54. CARBENIN [Concomitant]
     Route: 065
     Dates: start: 20111007, end: 20111011
  55. GAMIMUNE N 5% [Concomitant]
     Route: 065
     Dates: start: 20110920, end: 20110922
  56. GRAN [Concomitant]
     Route: 065
     Dates: start: 20110823, end: 20110914
  57. FUNGUARD [Concomitant]
     Route: 065
     Dates: start: 20110826, end: 20110916
  58. LEVOFLOXACIN [Concomitant]
     Route: 065
     Dates: start: 20110907, end: 20110919
  59. HYDROCORTISONE SODIUM SUCCINATE [Concomitant]
     Route: 065
     Dates: start: 20110927, end: 20110927
  60. MORPHINE HYDROCHLORIDE HYDRATE [Concomitant]
     Route: 065
     Dates: start: 20111011, end: 20111011
  61. HUMULIN R [Concomitant]
     Dates: start: 20110921, end: 20111011

REACTIONS (13)
  - PYREXIA [None]
  - STOMATITIS [None]
  - FEBRILE NEUTROPENIA [None]
  - WHITE BLOOD CELL COUNT DECREASED [None]
  - CONSTIPATION [None]
  - PLATELET COUNT DECREASED [None]
  - LUNG INFECTION [None]
  - ANAEMIA [None]
  - BLOOD CREATININE INCREASED [None]
  - RESPIRATORY FAILURE [None]
  - NEUTROPHIL COUNT DECREASED [None]
  - DIARRHOEA [None]
  - INSOMNIA [None]
